FAERS Safety Report 21582429 (Version 2)
Quarter: 2022Q4

REPORT INFORMATION
  Report Type: Report from Study
  Country: US (occurrence: US)
  Receive Date: 20221111
  Receipt Date: 20221114
  Transmission Date: 20230113
  Serious: No
  Sender: FDA-Public Use
  Company Number: US-002147023-NVSC2022US253500

PATIENT
  Age: 17 Year
  Sex: Female

DRUGS (2)
  1. VIJOICE [Suspect]
     Active Substance: ALPELISIB
     Indication: Vascular malformation
     Dosage: 125 MG, QD
     Route: 048
     Dates: start: 20220929
  2. VIJOICE [Suspect]
     Active Substance: ALPELISIB
     Dosage: 125 MG, QD
     Route: 048
     Dates: start: 20221001, end: 20221101

REACTIONS (3)
  - Nausea [Unknown]
  - Alopecia [Unknown]
  - Product dose omission issue [Unknown]

NARRATIVE: CASE EVENT DATE: 20221008
